FAERS Safety Report 12327244 (Version 1)
Quarter: 2016Q2

REPORT INFORMATION
  Report Type: Report from Study
  Country: US (occurrence: US)
  Receive Date: 20160503
  Receipt Date: 20160503
  Transmission Date: 20160815
  Serious: No
  Sender: FDA-Public Use
  Company Number: ADR-2015-00776

PATIENT
  Age: 66 Year
  Sex: Female

DRUGS (20)
  1. BUPIVACAINE. [Suspect]
     Active Substance: BUPIVACAINE
     Dosage: 18.909 MG/DAY
     Route: 037
  2. DILAUDID [Suspect]
     Active Substance: HYDROMORPHONE HYDROCHLORIDE
     Dosage: 2.5006 MG/DAY
     Route: 037
     Dates: start: 20150326
  3. DILAUDID [Suspect]
     Active Substance: HYDROMORPHONE HYDROCHLORIDE
     Dosage: 2.2484 MG/DAY
     Route: 037
  4. CLONIDINE. [Suspect]
     Active Substance: CLONIDINE
     Dosage: 94.54 MCG/DAY
     Route: 037
  5. BUPIVACAINE. [Suspect]
     Active Substance: BUPIVACAINE
     Dosage: 25.006 MG/DAY
     Route: 037
     Dates: start: 20150326
  6. COMPOUNDED BACLOFEN [Suspect]
     Active Substance: BACLOFEN
     Dosage: 125.03 MCG/DAY
     Route: 037
     Dates: start: 20150326
  7. CLONIDINE. [Suspect]
     Active Substance: CLONIDINE
     Dosage: 112.42 MCG/DAY
     Route: 037
  8. DILAUDID [Suspect]
     Active Substance: HYDROMORPHONE HYDROCHLORIDE
     Dosage: 2.6491 MG/DAY
     Route: 037
     Dates: end: 20141029
  9. DILAUDID [Suspect]
     Active Substance: HYDROMORPHONE HYDROCHLORIDE
     Dosage: 1.8909 MG/DAY
     Route: 037
  10. CLONIDINE. [Suspect]
     Active Substance: CLONIDINE
     Dosage: 110.11 MCG/DAY
     Route: 037
  11. BUPIVACAINE. [Suspect]
     Active Substance: BUPIVACAINE
     Dosage: 22.022 MG/DAY
     Route: 037
  12. COMPOUNDED BACLOFEN [Suspect]
     Active Substance: BACLOFEN
     Dosage: 94.54 MCG/DAY
     Route: 037
  13. COMPOUNDED BACLOFEN [Suspect]
     Active Substance: BACLOFEN
     Dosage: 132.46 MCG/DAY
     Route: 037
     Dates: end: 20141029
  14. BUPIVACAINE. [Suspect]
     Active Substance: BUPIVACAINE
     Dosage: 26.491 MG/DAY
     Route: 037
     Dates: end: 20141029
  15. CLONIDINE. [Suspect]
     Active Substance: CLONIDINE
     Dosage: 132.46 MCG/DAY
     Route: 037
     Dates: end: 20141029
  16. DILAUDID [Suspect]
     Active Substance: HYDROMORPHONE HYDROCHLORIDE
     Dosage: 2.2022 MG/DAY
     Route: 037
  17. BUPIVACAINE. [Suspect]
     Active Substance: BUPIVACAINE
     Dosage: 22.484 MG/DAY
     Route: 037
  18. COMPOUNDED BACLOFEN [Suspect]
     Active Substance: BACLOFEN
     Dosage: 110.11 MCG/DAY
     Route: 037
  19. CLONIDINE. [Suspect]
     Active Substance: CLONIDINE
     Dosage: 125.03 MCG/DAY
     Route: 037
     Dates: start: 20150326
  20. COMPOUNDED BACLOFEN [Suspect]
     Active Substance: BACLOFEN
     Dosage: 112.42 MCG/DAY
     Route: 037

REACTIONS (8)
  - Nausea [Recovered/Resolved]
  - No therapeutic response [Recovered/Resolved]
  - Dizziness [Unknown]
  - Hypotension [Recovered/Resolved]
  - Vomiting [Recovered/Resolved]
  - Malaise [Recovered/Resolved]
  - Headache [Recovered/Resolved]
  - Medical device site pain [Recovered/Resolved]

NARRATIVE: CASE EVENT DATE: 20140715
